FAERS Safety Report 18986404 (Version 1)
Quarter: 2021Q1

REPORT INFORMATION
  Report Type: Spontaneous
  Country: US (occurrence: US)
  Receive Date: 20210308
  Receipt Date: 20210308
  Transmission Date: 20210420
  Serious: Yes (Other)
  Sender: FDA-Public Use
  Company Number: None

PATIENT
  Age: 50 Year
  Sex: Female
  Weight: 55.35 kg

DRUGS (10)
  1. FULPHILA [Suspect]
     Active Substance: PEGFILGRASTIM-JMDB
     Indication: NEUTROPENIA
     Dosage: ?          QUANTITY:1 INJECTION(S);OTHER FREQUENCY:EVERY 14 DAYS;?
     Route: 030
     Dates: start: 20210205, end: 20210305
  2. DEXAMETHASONE. [Concomitant]
     Active Substance: DEXAMETHASONE
  3. ZOFRAN [Concomitant]
     Active Substance: ONDANSETRON HYDROCHLORIDE
  4. CALCIUM [Concomitant]
     Active Substance: CALCIUM
  5. VITAMIN D [Concomitant]
     Active Substance: VITAMIN D NOS
  6. ZYRTEC [Concomitant]
     Active Substance: CETIRIZINE HYDROCHLORIDE
  7. ACIDOPHILUS [Concomitant]
     Active Substance: LACTOBACILLUS ACIDOPHILUS
  8. HALAVEN [Concomitant]
     Active Substance: ERIBULIN MESYLATE
  9. COLACE [Concomitant]
     Active Substance: DOCUSATE SODIUM
  10. GABAPENTIN. [Concomitant]
     Active Substance: GABAPENTIN

REACTIONS (7)
  - Injection site bruising [None]
  - Chills [None]
  - Fall [None]
  - Pain in extremity [None]
  - Limb injury [None]
  - Malaise [None]
  - Pyrexia [None]

NARRATIVE: CASE EVENT DATE: 20210305
